FAERS Safety Report 7691988-4 (Version None)
Quarter: 2011Q3

REPORT INFORMATION
  Report Type: 
  Country: None (occurrence: None)
  Receive Date: 20110818
  Receipt Date: 20101214
  Transmission Date: 20111222
  Serious: No
  Sender: FDA-Public Use
  Company Number: US-BAYER-2010-008455

PATIENT
  Sex: Female

DRUGS (1)
  1. MIRENA [Suspect]
     Indication: CONTRACEPTION
     Dosage: UNK
     Dates: start: 20101028, end: 20101212

REACTIONS (6)
  - MOOD SWINGS [None]
  - METRORRHAGIA [None]
  - FEELING ABNORMAL [None]
  - ACNE [None]
  - DEPRESSION [None]
  - DEVICE DISLOCATION [None]
